FAERS Safety Report 19044441 (Version 1)
Quarter: 2021Q1

REPORT INFORMATION
  Report Type: Spontaneous
  Country: DE (occurrence: DE)
  Receive Date: 20210323
  Receipt Date: 20210323
  Transmission Date: 20210420
  Serious: Yes (Life-Threatening, Hospitalization)
  Sender: FDA-Public Use
  Company Number: DE-TEVA-2021-DE-1893408

PATIENT
  Age: 57 Year
  Sex: Male

DRUGS (9)
  1. VERAPAMIL [Suspect]
     Active Substance: VERAPAMIL HYDROCHLORIDE
     Dosage: 160 MILLIGRAM DAILY;   1?0?0?1
     Route: 048
  2. OMEPRAZOL [Concomitant]
     Active Substance: OMEPRAZOLE
     Dosage: 40 MILLIGRAM DAILY;  1?0?0?0
     Route: 048
  3. DICLOFENAC [Suspect]
     Active Substance: DICLOFENAC
     Dosage: 150 MILLIGRAM DAILY;   1?0?1?0
     Route: 048
  4. SALBUTAMOL [Concomitant]
     Active Substance: ALBUTEROL
     Dosage: .3 MILLIGRAM DAILY; 1?1?1?0, METERED DOSE INHALER
     Route: 055
  5. RAMIPRIL. [Suspect]
     Active Substance: RAMIPRIL
     Dosage: 5 MILLIGRAM DAILY;   1?0?0?0
     Route: 048
  6. ALLOPURINOL. [Suspect]
     Active Substance: ALLOPURINOL
     Dosage: 300 MILLIGRAM DAILY;   1?0?0?0
     Route: 048
  7. AMLODIPIN [Suspect]
     Active Substance: AMLODIPINE BESYLATE
     Dosage: 5 MILLIGRAM DAILY;  1?0?0?0
     Route: 048
  8. DUAKLIR GENUAIR 340MIKROGRAMM/12MIKROGRAMM [Concomitant]
     Dosage: 2 DOSAGE FORMS DAILY; 340 | 12 UG, 1?0?1?0, METERED DOSE INHALER
     Route: 055
  9. BISOPROLOL [Suspect]
     Active Substance: BISOPROLOL
     Dosage: 2.5 MILLIGRAM DAILY; 1?0?0?0,
     Route: 048

REACTIONS (3)
  - Condition aggravated [Unknown]
  - General physical health deterioration [Unknown]
  - Electrolyte imbalance [Unknown]
